FAERS Safety Report 5358682-6 (Version None)
Quarter: 2007Q2

REPORT INFORMATION
  Report Type: 
  Country: None (occurrence: None)
  Receive Date: 20070615
  Receipt Date: 20070611
  Transmission Date: 20071010
  Serious: No
  Sender: FDA-Public Use
  Company Number: US-JNJFOC-20070602880

PATIENT
  Age: 50 Year
  Sex: Male

DRUGS (2)
  1. INVEGA [Suspect]
     Indication: SCHIZOPHRENIA
     Route: 048
  2. SEROQUEL [Concomitant]
     Indication: SCHIZOPHRENIA
     Route: 048

REACTIONS (1)
  - OCULAR HYPERAEMIA [None]
